FAERS Safety Report 4434948-9 (Version None)
Quarter: 2004Q3

REPORT INFORMATION
  Report Type: 
  Country: None (occurrence: None)
  Receive Date: 20040726
  Receipt Date: 20040513
  Transmission Date: 20050211
  Serious: No
  Sender: FDA-Public Use
  Company Number: US_0404101966

PATIENT
  Age: 52 Year
  Sex: Female

DRUGS (1)
  1. FORTEO [Suspect]
     Indication: OSTEOPOROSIS
     Dosage: 20 UG DAY
     Dates: start: 20040225

REACTIONS (4)
  - BLOOD GLUCOSE INCREASED [None]
  - NERVOUSNESS [None]
  - NEUROPATHY PERIPHERAL [None]
  - STRESS SYMPTOMS [None]
